FAERS Safety Report 6882232-6 (Version None)
Quarter: 2010Q3

REPORT INFORMATION
  Report Type: 
  Country: None (occurrence: None)
  Receive Date: 20100702
  Receipt Date: 20091222
  Transmission Date: 20110219
  Serious: Yes (Other)
  Sender: FDA-Public Use
  Company Number: 2009315560

PATIENT
  Age: 51 Year
  Sex: Female
  Weight: 127 kg

DRUGS (4)
  1. SERTRALINE HYDROCHLORIDE [Suspect]
     Indication: DEPRESSION
     Dosage: 50 MG
     Dates: start: 20090101
  2. PROTONIX [Concomitant]
  3. MOBIC [Concomitant]
  4. MINOCYCLINE HCL [Concomitant]

REACTIONS (1)
  - BLOOD GLUCOSE INCREASED [None]
